FAERS Safety Report 9000389 (Version 2)
Quarter: 2013Q1

REPORT INFORMATION
  Report Type: Spontaneous
  Country: US (occurrence: US)
  Receive Date: 20130107
  Receipt Date: 20130206
  Transmission Date: 20140127
  Serious: No
  Sender: FDA-Public Use
  Company Number: US-BIOGENIDEC-2012BI065123

PATIENT
  Age: 59 Year
  Sex: Female

DRUGS (1)
  1. TYSABRI [Suspect]
     Indication: MULTIPLE SCLEROSIS
     Route: 042
     Dates: start: 20100331

REACTIONS (4)
  - Herpes zoster [Recovered/Resolved]
  - Pruritus [Unknown]
  - Rash [Not Recovered/Not Resolved]
  - Upper respiratory tract infection [Recovered/Resolved with Sequelae]
